FAERS Safety Report 15204301 (Version 1)
Quarter: 2018Q3

REPORT INFORMATION
  Report Type: Spontaneous
  Country: US (occurrence: US)
  Receive Date: 20180628
  Receipt Date: 20180628
  Transmission Date: 20181010
  Serious: No
  Sender: FDA-Public Use
  Company Number: None

PATIENT
  Age: 44 Year
  Sex: Female

DRUGS (1)
  1. CAPECITABINE 500MG WEST?WARD [Suspect]
     Active Substance: CAPECITABINE
     Indication: COLON CANCER
     Route: 048
     Dates: start: 20180108

REACTIONS (4)
  - Weight increased [None]
  - Flatulence [None]
  - Swelling [None]
  - Oedema [None]

NARRATIVE: CASE EVENT DATE: 20170606
